FAERS Safety Report 4502027-8 (Version None)
Quarter: 2004Q4

REPORT INFORMATION
  Report Type: 
  Country: None (occurrence: None)
  Receive Date: 20041115
  Receipt Date: 20041102
  Transmission Date: 20050328
  Serious: Yes (Hospitalization)
  Sender: FDA-Public Use
  Company Number: 2004UW18582

PATIENT
  Age: 69 Year
  Sex: Male
  Weight: 84.369 kg

DRUGS (6)
  1. CRESTOR [Suspect]
     Indication: BLOOD CHOLESTEROL INCREASED
     Dosage: 10 MG DAILY PO
     Route: 048
     Dates: start: 20040810, end: 20040812
  2. ZOCOR [Concomitant]
  3. ZETIA [Concomitant]
  4. ATENOLOL [Concomitant]
  5. NIASPAN [Concomitant]
  6. ATIVAN [Concomitant]

REACTIONS (5)
  - BACK INJURY [None]
  - INFECTION [None]
  - MUSCLE SPASMS [None]
  - OSTEOARTHRITIS [None]
  - SPINAL OSTEOARTHRITIS [None]
